FAERS Safety Report 9278853 (Version 1)
Quarter: 2013Q2

REPORT INFORMATION
  Report Type: Spontaneous
  Country: US (occurrence: None)
  Receive Date: 20130506
  Receipt Date: 20130506
  Transmission Date: 20140414
  Serious: Yes (Life-Threatening, Hospitalization)
  Sender: FDA-Public Use
  Company Number: None

PATIENT
  Age: 82 Year
  Sex: Male
  Weight: 114.7 kg

DRUGS (1)
  1. CEFTRIAXONE [Suspect]
     Indication: PROPHYLAXIS
     Route: 042
     Dates: start: 20130331, end: 20130331

REACTIONS (6)
  - Cardiac failure congestive [None]
  - Pulseless electrical activity [None]
  - Cardiac arrest [None]
  - Bronchial secretion retention [None]
  - Anaphylactic reaction [None]
  - Angioedema [None]
